FAERS Safety Report 25584084 (Version 1)
Quarter: 2025Q3

REPORT INFORMATION
  Report Type: Spontaneous
  Country: GB (occurrence: GB)
  Receive Date: 20250721
  Receipt Date: 20250721
  Transmission Date: 20251021
  Serious: Yes (Death, Other)
  Sender: DR REDDYS
  Company Number: None

PATIENT
  Age: 82 Year
  Sex: Male

DRUGS (1)
  1. CAPECITABINE [Suspect]
     Active Substance: CAPECITABINE
     Indication: Colorectal cancer
     Dates: start: 20250630, end: 20250702

REACTIONS (6)
  - Ventricular fibrillation [Fatal]
  - Acute myocardial infarction [Unknown]
  - Confusional state [Unknown]
  - Chest pain [Unknown]
  - Nausea [Unknown]
  - Vomiting [Unknown]

NARRATIVE: CASE EVENT DATE: 20250702
